FAERS Safety Report 9861688 (Version 1)
Quarter: 2014Q1

REPORT INFORMATION
  Report Type: Spontaneous
  Country: US (occurrence: None)
  Receive Date: 20140131
  Receipt Date: 20140131
  Transmission Date: 20141002
  Serious: Yes (Disabling)
  Sender: FDA-Public Use
  Company Number: None

PATIENT
  Age: 94 Year
  Sex: Female
  Weight: 69.85 kg

DRUGS (10)
  1. LEFLUNOMIDE [Suspect]
     Dosage: 10 MG + 20MG?1 PILL A DAY ?WITH WATER
     Dates: start: 20120503, end: 20120601
  2. PLAVIX [Concomitant]
  3. AMLOPIDINE [Concomitant]
  4. FOLTC ACID [Concomitant]
  5. PREDNISONE [Concomitant]
  6. METHOTARTRATE [Concomitant]
  7. MULTI VIT [Concomitant]
  8. CAL-MAC-ZINC [Concomitant]
  9. HEART B12 [Concomitant]
  10. VIT D [Concomitant]

REACTIONS (7)
  - Acne [None]
  - Musculoskeletal disorder [None]
  - Sensory disturbance [None]
  - Alopecia [None]
  - Muscular weakness [None]
  - Muscular weakness [None]
  - Abasia [None]
